FAERS Safety Report 9228289 (Version 1)
Quarter: 2013Q2

REPORT INFORMATION
  Report Type: Report from Study
  Country: RO (occurrence: RO)
  Receive Date: 20130412
  Receipt Date: 20130412
  Transmission Date: 20140414
  Serious: Yes (Other)
  Sender: FDA-Public Use
  Company Number: RO-ROCHE-1211099

PATIENT
  Sex: 0

DRUGS (6)
  1. ALTEPLASE [Suspect]
     Indication: ACUTE MYOCARDIAL INFARCTION
     Dosage: 15 MG BOLUS FOLLOWED BY 50 MG IN 30 MIN AND 35 MG WITHIN THE NEXT 60 MIN
     Route: 040
  2. STREPTOKINASE [Suspect]
     Indication: ACUTE MYOCARDIAL INFARCTION
     Dosage: HALF DOSE OF 75 MU IN 10 MIN
     Route: 065
  3. ENOXAPARIN [Suspect]
     Indication: ACUTE MYOCARDIAL INFARCTION
     Route: 042
  4. ENOXAPARIN [Suspect]
     Route: 058
  5. ASPIRIN [Suspect]
     Indication: ACUTE MYOCARDIAL INFARCTION
     Dosage: 250-325 MG
     Route: 065
  6. HEPARIN [Suspect]
     Indication: ACUTE MYOCARDIAL INFARCTION
     Dosage: 1000 IU/ 60 MIN
     Route: 065

REACTIONS (1)
  - Ischaemic stroke [Unknown]
